FAERS Safety Report 11812891 (Version 10)
Quarter: 2016Q3

REPORT INFORMATION
  Report Type: Spontaneous
  Country: GB (occurrence: GB)
  Receive Date: 20151209
  Receipt Date: 20160914
  Transmission Date: 20161109
  Serious: Yes (Life-Threatening, Hospitalization, Other)
  Sender: FDA-Public Use
  Company Number: GB-AUROBINDO-AUR-APL-2015-11100

PATIENT
  Age: 52 Year
  Sex: Male

DRUGS (25)
  1. CLOPIDOGREL [Suspect]
     Active Substance: CLOPIDOGREL BISULFATE
     Indication: PRODUCT USED FOR UNKNOWN INDICATION
     Dosage: UNK
     Route: 065
     Dates: start: 20131008
  2. ASPIRIN. [Suspect]
     Active Substance: ASPIRIN
     Dosage: STRENGTH : 75 MG
     Route: 065
     Dates: start: 20131008, end: 20141201
  3. ATORVASTATIN [Concomitant]
     Active Substance: ATORVASTATIN
     Indication: PRODUCT USED FOR UNKNOWN INDICATION
     Dosage: UNK
     Route: 065
     Dates: start: 20140110, end: 20140330
  4. ATORVASTATIN [Concomitant]
     Active Substance: ATORVASTATIN
     Dosage: 80 MG, UNK
     Dates: start: 20131008, end: 20131219
  5. CODEINE PHOSPHATE [Concomitant]
     Active Substance: CODEINE PHOSPHATE
     Indication: PRODUCT USED FOR UNKNOWN INDICATION
     Dosage: QDS PRN
     Route: 048
     Dates: start: 20140416
  6. RAMIPRIL 2.5MG [Suspect]
     Active Substance: RAMIPRIL
     Indication: PRODUCT USED FOR UNKNOWN INDICATION
     Dosage: UNK
     Route: 065
     Dates: start: 20131010
  7. GLUCAGON. [Concomitant]
     Active Substance: GLUCAGON
     Indication: PRODUCT USED FOR UNKNOWN INDICATION
     Dosage: 4 MG INFUSION
     Route: 042
     Dates: start: 20141201, end: 20141201
  8. TRAMADOL. [Concomitant]
     Active Substance: TRAMADOL
     Indication: PRODUCT USED FOR UNKNOWN INDICATION
     Dosage: TRAMADOL 50-100MG ORAL Q4H PRN
     Route: 065
     Dates: start: 20140416
  9. FLUOXETINE [Suspect]
     Active Substance: FLUOXETINE HYDROCHLORIDE
     Dosage: 20 DF, UNK
     Route: 048
     Dates: start: 20120813
  10. RAMIPRIL 2.5MG [Suspect]
     Active Substance: RAMIPRIL
     Dosage: 56 DF, UNK
     Route: 065
     Dates: start: 20141201, end: 20141201
  11. PARACETAMOL [Suspect]
     Active Substance: ACETAMINOPHEN
     Indication: PRODUCT USED FOR UNKNOWN INDICATION
     Dosage: UNK
     Route: 065
     Dates: start: 20140510, end: 20140510
  12. BISOPROLOL 2.5 MG [Suspect]
     Active Substance: BISOPROLOL
     Indication: PRODUCT USED FOR UNKNOWN INDICATION
     Dosage: 16 DF, UNK
     Route: 065
     Dates: start: 20141201, end: 20141201
  13. BISOPROLOL 2.5 MG [Suspect]
     Active Substance: BISOPROLOL
     Dosage: UNK
     Route: 065
     Dates: start: 20131008
  14. ATORVASTATIN [Concomitant]
     Active Substance: ATORVASTATIN
     Dosage: UNK
     Dates: start: 20131008, end: 20140330
  15. CO-AMOXICLAV                       /00756801/ [Concomitant]
     Active Substance: AMOXICILLIN\CLAVULANIC ACID
     Dosage: 625MG TDS
     Route: 048
     Dates: start: 20140418, end: 20140423
  16. GLYCERYL TRINITRATE [Concomitant]
     Active Substance: NITROGLYCERIN
     Indication: PRODUCT USED FOR UNKNOWN INDICATION
     Dosage: UNK
     Route: 065
     Dates: start: 20131008
  17. AMLODIPINE 10 MG [Suspect]
     Active Substance: AMLODIPINE BESYLATE
     Dosage: 20 DF, UNK
     Route: 065
     Dates: start: 20141201, end: 20141201
  18. ASPIRIN. [Suspect]
     Active Substance: ASPIRIN
     Indication: PRODUCT USED FOR UNKNOWN INDICATION
     Dosage: 48 DF, SINGLE
     Route: 065
     Dates: start: 20141201, end: 20141201
  19. CO-AMOXICLAV                       /00756801/ [Concomitant]
     Active Substance: AMOXICILLIN\CLAVULANIC ACID
     Indication: PRODUCT USED FOR UNKNOWN INDICATION
     Dosage: 1200MG TDS
     Route: 042
     Dates: start: 20140416, end: 20140418
  20. CODEINE PHOSPHATE [Concomitant]
     Active Substance: CODEINE PHOSPHATE
     Dosage: QDS PRN
     Route: 048
  21. FLUOXETINE [Suspect]
     Active Substance: FLUOXETINE HYDROCHLORIDE
     Indication: DEPRESSION
     Dosage: 20 MG, UNK
     Route: 048
     Dates: start: 20141201, end: 20141217
  22. IBUPROFEN 200MG [Suspect]
     Active Substance: IBUPROFEN
     Indication: PRODUCT USED FOR UNKNOWN INDICATION
     Dosage: 16 DF, UNK
     Route: 065
     Dates: start: 20141201, end: 20141201
  23. IBUPROFEN 200MG [Suspect]
     Active Substance: IBUPROFEN
     Dosage: UNK
     Route: 065
     Dates: start: 20141119
  24. ANADIN                             /00112401/ [Suspect]
     Active Substance: ASPIRIN\CAFFEINE\QUININE\SALICYLAMIDE
     Indication: PRODUCT USED FOR UNKNOWN INDICATION
     Dosage: DOSE IS 200MGX 16
     Route: 065
  25. AMLODIPINE 10 MG [Suspect]
     Active Substance: AMLODIPINE BESYLATE
     Indication: PRODUCT USED FOR UNKNOWN INDICATION
     Dosage: UNK
     Route: 065
     Dates: start: 20101001

REACTIONS (8)
  - Suicide attempt [Recovered/Resolved]
  - Vomiting [Recovered/Resolved]
  - Hypotension [Recovered/Resolved]
  - Depressed mood [Not Recovered/Not Resolved]
  - Bradycardia [Recovered/Resolved]
  - Intentional overdose [Recovered/Resolved]
  - Syncope [Recovered/Resolved]
  - Dizziness [Unknown]

NARRATIVE: CASE EVENT DATE: 20141201
